FAERS Safety Report 4437073-6 (Version None)
Quarter: 2004Q3

REPORT INFORMATION
  Report Type: 
  Country: None (occurrence: None)
  Receive Date: 20040827
  Receipt Date: 20040817
  Transmission Date: 20050211
  Serious: Yes (Other)
  Sender: FDA-Public Use
  Company Number: US-JNJFOC-20040806355

PATIENT
  Sex: Female

DRUGS (1)
  1. MOTRIN [Suspect]

REACTIONS (2)
  - BLINDNESS [None]
  - PHOTOSENSITIVITY REACTION [None]
